FAERS Safety Report 26210725 (Version 1)
Quarter: 2025Q4

REPORT INFORMATION
  Report Type: Spontaneous
  Country: EU (occurrence: EU)
  Receive Date: 20251230
  Receipt Date: 20251230
  Transmission Date: 20260118
  Serious: Yes (Hospitalization, Other)
  Sender: AUROBINDO
  Company Number: EU-AFSSAPS-MP2025001607

PATIENT
  Age: 0 Day
  Sex: Female
  Weight: 2.24 kg

DRUGS (3)
  1. MIRTAZAPINE [Suspect]
     Active Substance: MIRTAZAPINE
     Indication: Nightmare
     Dosage: 15 MILLIGRAM, ONCE A DAY ( 15MG/DAY)
     Route: 061
     Dates: start: 20250129, end: 202503
  2. ATARAX [Suspect]
     Active Substance: HYDROXYZINE HYDROCHLORIDE
     Indication: Initial insomnia
     Dosage: 25 MILLIGRAM, ONCE A DAY (25MG/DAY)
     Route: 061
     Dates: start: 20250129, end: 20250616
  3. OXAZEPAM [Suspect]
     Active Substance: OXAZEPAM
     Indication: Anxiety
     Dosage: 30 MILLIGRAM (10 MG/DAY + 10 TO 20 MG/DAY IF NEEDED)
     Route: 061
     Dates: start: 20250327, end: 20250616

REACTIONS (4)
  - Immature respiratory system [Recovered/Resolved]
  - Foetal growth restriction [Recovered/Resolved]
  - Microcephaly [Recovered/Resolved]
  - Maternal exposure during pregnancy [Recovered/Resolved]

NARRATIVE: CASE EVENT DATE: 20250616
